FAERS Safety Report 6702709-3 (Version None)
Quarter: 2010Q2

REPORT INFORMATION
  Report Type: 
  Country: None (occurrence: None)
  Receive Date: 20100429
  Receipt Date: 20100426
  Transmission Date: 20101027
  Serious: Yes (Life-Threatening, Hospitalization, Other)
  Sender: FDA-Public Use
  Company Number: GR-WYE-G06029210

PATIENT
  Age: 74 Year
  Sex: Female
  Weight: 65 kg

DRUGS (8)
  1. TYGACIL [Suspect]
     Indication: KLEBSIELLA BACTERAEMIA
     Route: 042
     Dates: start: 20091028, end: 20091107
  2. NEXIUM [Concomitant]
     Dosage: ONE TABLET DAILY
     Route: 048
  3. GLOPIR [Concomitant]
     Dosage: UNSPECIFIED
  4. PREZOLON [Concomitant]
     Route: 042
  5. CAPOTEN [Concomitant]
     Dosage: UNSPECIFIED
  6. DILATREND [Concomitant]
     Dosage: UNSPECIFED
  7. GARAMYCIN [Concomitant]
     Route: 042
  8. CLEXANE [Concomitant]
     Route: 042

REACTIONS (6)
  - CARDIAC ARREST [None]
  - EPIDERMOLYSIS [None]
  - RASH MACULO-PAPULAR [None]
  - RASH PUSTULAR [None]
  - SKIN HYPERPIGMENTATION [None]
  - SKIN REACTION [None]
